FAERS Safety Report 7208164-1 (Version None)
Quarter: 2011Q1

REPORT INFORMATION
  Report Type: 
  Country: None (occurrence: None)
  Receive Date: 20110104
  Receipt Date: 20101223
  Transmission Date: 20110831
  Serious: Yes (Hospitalization, Other)
  Sender: FDA-Public Use
  Company Number: US-BAYER-200834957NA

PATIENT
  Sex: Female

DRUGS (5)
  1. BETASERON [Suspect]
     Indication: RELAPSING-REMITTING MULTIPLE SCLEROSIS
     Dosage: 2 MIU, QOD
     Route: 058
     Dates: start: 20080917, end: 20101201
  2. LYRICA [Concomitant]
  3. EPITOL [Concomitant]
  4. FINGOLIMOD [Concomitant]
     Dosage: UNK
     Dates: start: 20101214, end: 20101216
  5. ZOLOFT [Concomitant]

REACTIONS (10)
  - MULTIPLE SCLEROSIS [None]
  - CARDIAC FAILURE CONGESTIVE [None]
  - BRONCHITIS [None]
  - SUFFOCATION FEELING [None]
  - BLOOD PRESSURE INCREASED [None]
  - COUGH [None]
  - PNEUMONIA [None]
  - MOBILITY DECREASED [None]
  - PAIN [None]
  - RETCHING [None]
